FAERS Safety Report 6686736-0 (Version None)
Quarter: 2010Q2

REPORT INFORMATION
  Report Type: 
  Country: None (occurrence: None)
  Receive Date: 20100419
  Receipt Date: 20100415
  Transmission Date: 20101027
  Serious: Yes (Other)
  Sender: FDA-Public Use
  Company Number: US-MERCK-1004USA02254

PATIENT
  Age: 64 Year
  Sex: Male
  Weight: 97 kg

DRUGS (7)
  1. ZETIA [Suspect]
     Indication: BLOOD CHOLESTEROL INCREASED
     Route: 048
  2. LIPITOR [Suspect]
     Indication: BLOOD CHOLESTEROL INCREASED
     Route: 048
  3. AVANDIA [Suspect]
     Indication: DIABETES MELLITUS
     Route: 048
  4. ASPIRIN [Concomitant]
     Route: 065
  5. GLUCOVANCE [Concomitant]
     Indication: DIABETES MELLITUS
     Route: 065
  6. PRILOSEC [Concomitant]
     Indication: DYSPEPSIA
     Route: 065
  7. JANUVIA [Concomitant]
     Indication: DIABETES MELLITUS
     Route: 048

REACTIONS (6)
  - ALOPECIA [None]
  - ARTERIAL DISORDER [None]
  - ASTHENIA [None]
  - CARDIAC DISORDER [None]
  - JOINT STIFFNESS [None]
  - OEDEMA PERIPHERAL [None]
